FAERS Safety Report 7514245-5 (Version None)
Quarter: 2011Q2

REPORT INFORMATION
  Report Type: 
  Country: None (occurrence: None)
  Receive Date: 20110601
  Receipt Date: 20110524
  Transmission Date: 20111010
  Serious: Yes (Death, Other)
  Sender: FDA-Public Use
  Company Number: RU-BRISTOL-MYERS SQUIBB COMPANY-15715527

PATIENT
  Age: 58 Year
  Sex: Male
  Weight: 58 kg

DRUGS (5)
  1. PREDNISOLONE [Suspect]
     Dates: start: 20101101
  2. ORENCIA [Suspect]
     Indication: RHEUMATOID ARTHRITIS
     Dosage: LAST INF ON APR2011
     Dates: start: 20110201, end: 20110401
  3. OMEPRAZOLE [Concomitant]
     Indication: GASTROINTESTINAL DISORDER
  4. AMOKSIKLAV [Suspect]
  5. LISINOPRIL [Concomitant]
     Indication: HYPERTENSION

REACTIONS (7)
  - MULTI-ORGAN FAILURE [None]
  - PNEUMONIA [None]
  - RESPIRATORY TRACT INFECTION VIRAL [None]
  - SEPSIS [None]
  - TRACHEAL STENOSIS [None]
  - ASPHYXIA [None]
  - PERIPROCTITIS [None]
